FAERS Safety Report 24231517 (Version 1)
Quarter: 2024Q3

REPORT INFORMATION
  Report Type: Report from Study
  Country: GB (occurrence: GB)
  Receive Date: 20240821
  Receipt Date: 20240821
  Transmission Date: 20241017
  Serious: Yes (Hospitalization, Other)
  Sender: SANDOZ
  Company Number: GB-SANDOZ-SDZ2024GB023207

PATIENT
  Sex: Female

DRUGS (1)
  1. HYRIMOZ [Suspect]
     Active Substance: ADALIMUMAB-ADAZ
     Indication: Crohn^s disease
     Dosage: 40 MG, Q2W
     Route: 058
     Dates: start: 20230711

REACTIONS (5)
  - Renal abscess [Not Recovered/Not Resolved]
  - Lung abscess [Unknown]
  - Sepsis [Unknown]
  - Blood glucose increased [Unknown]
  - Abscess limb [Not Recovered/Not Resolved]
